FAERS Safety Report 8839298 (Version 1)
Quarter: 2012Q4

REPORT INFORMATION
  Report Type: 
  Country: US (occurrence: US)
  Receive Date: 20121015
  Receipt Date: 20121015
  Transmission Date: 20130627
  Serious: No
  Sender: FDA-Public Use
  Company Number: US-GLAXOSMITHKLINE-A0966559A

PATIENT
  Sex: Male

DRUGS (1)
  1. DUAC [Suspect]
     Route: 061

REACTIONS (1)
  - Drug administration error [Unknown]
